FAERS Safety Report 6298202-5 (Version None)
Quarter: 2009Q3

REPORT INFORMATION
  Report Type: 
  Country: None (occurrence: None)
  Receive Date: 20090805
  Receipt Date: 20090731
  Transmission Date: 20100115
  Serious: Yes (Other)
  Sender: FDA-Public Use
  Company Number: FR-BRISTOL-MYERS SQUIBB COMPANY-14724793

PATIENT
  Age: 33 Year
  Sex: Male

DRUGS (3)
  1. BLEOMYCIN SULFATE [Suspect]
     Route: 042
  2. CISPLATIN [Suspect]
     Route: 042
  3. ETOPOSIDE [Suspect]
     Route: 042

REACTIONS (1)
  - HEPATITIS B [None]
